FAERS Safety Report 4945377-3 (Version None)
Quarter: 2006Q1

REPORT INFORMATION
  Report Type: 
  Country: None (occurrence: None)
  Receive Date: 20060315
  Receipt Date: 20060315
  Transmission Date: 20060701
  Serious: Yes (Hospitalization)
  Sender: FDA-Public Use
  Company Number: None

PATIENT
  Age: 83 Year
  Sex: Male
  Weight: 62.5964 kg

DRUGS (2)
  1. CLINDAMYCIN [Suspect]
     Indication: RESPIRATORY TRACT INFECTION
     Dosage: 450 MG PO Q 6 HOURS
     Route: 048
  2. ZOSYN [Suspect]
     Indication: INFECTION
     Dosage: 3.375 G Q 6 HOURS  IV
     Route: 042

REACTIONS (2)
  - EOSINOPHILIA [None]
  - RASH GENERALISED [None]
